FAERS Safety Report 13998993 (Version 2)
Quarter: 2017Q4

REPORT INFORMATION
  Report Type: Spontaneous
  Country: CO (occurrence: CO)
  Receive Date: 20170922
  Receipt Date: 20171224
  Transmission Date: 20180321
  Serious: Yes (Other)
  Sender: FDA-Public Use
  Company Number: CO-AMGEN-COLSP2016060142

PATIENT
  Age: 47 Year
  Sex: Female

DRUGS (1)
  1. ENBREL [Suspect]
     Active Substance: ETANERCEPT
     Indication: RHEUMATOID ARTHRITIS
     Dosage: 50 MG, WEEKLY
     Route: 065
     Dates: start: 2015

REACTIONS (9)
  - Feeling abnormal [Not Recovered/Not Resolved]
  - Pain in extremity [Not Recovered/Not Resolved]
  - Somnolence [Not Recovered/Not Resolved]
  - Cystitis [Not Recovered/Not Resolved]
  - Urinary tract infection [Not Recovered/Not Resolved]
  - Pyelonephritis [Not Recovered/Not Resolved]
  - Asthenia [Not Recovered/Not Resolved]
  - Pyrexia [Not Recovered/Not Resolved]
  - Malaise [Not Recovered/Not Resolved]

NARRATIVE: CASE EVENT DATE: 2016
